FAERS Safety Report 8222465-X (Version None)
Quarter: 2012Q1

REPORT INFORMATION
  Report Type: 
  Country: None (occurrence: None)
  Receive Date: 20120320
  Receipt Date: 20120307
  Transmission Date: 20120608
  Serious: Yes (Hospitalization)
  Sender: FDA-Public Use
  Company Number: PHHO2012KR003891

PATIENT
  Sex: Female
  Weight: 46.1 kg

DRUGS (3)
  1. PRANDIN [Suspect]
     Indication: IMMUNOSUPPRESSION
     Dosage: 6 MG, BID
     Route: 048
     Dates: start: 20120122
  2. SANDIMMUNE [Suspect]
     Indication: IMMUNOSUPPRESSION
     Dosage: 175 MG, QD
     Route: 048
     Dates: start: 20120117
  3. CERTICAN [Suspect]
     Indication: RENAL TRANSPLANT
     Dosage: 1.5 MG, QD
     Route: 048
     Dates: start: 20110217

REACTIONS (1)
  - HYDRONEPHROSIS [None]
